FAERS Safety Report 24391995 (Version 1)
Quarter: 2024Q4

REPORT INFORMATION
  Report Type: Spontaneous
  Country: US (occurrence: None)
  Receive Date: 20241002
  Receipt Date: 20241002
  Transmission Date: 20250114
  Serious: Yes (Hospitalization)
  Sender: Public
  Company Number: None

PATIENT
  Age: 81 Year
  Sex: Male
  Weight: 52 kg

DRUGS (2)
  1. INSULIN GLARGINE-YFGN [Suspect]
     Active Substance: INSULIN GLARGINE-YFGN
     Indication: Diabetes mellitus
     Dosage: FREQUENCY : DAILY;?
     Route: 058
  2. GLIMEPIRIDE [Suspect]
     Active Substance: GLIMEPIRIDE

REACTIONS (5)
  - Hypoglycaemia [None]
  - Unresponsive to stimuli [None]
  - Weight decreased [None]
  - Hypophagia [None]
  - Blood glucose increased [None]

NARRATIVE: CASE EVENT DATE: 20240319
